FAERS Safety Report 16075941 (Version 1)
Quarter: 2019Q1

REPORT INFORMATION
  Report Type: Spontaneous
  Country: US (occurrence: US)
  Receive Date: 20190315
  Receipt Date: 20190315
  Transmission Date: 20190418
  Serious: No
  Sender: FDA-Public Use
  Company Number: US-AMGEN-USASP2019039304

PATIENT
  Age: 77 Year
  Sex: Female

DRUGS (12)
  1. SULFASALAZINE. [Concomitant]
     Active Substance: SULFASALAZINE
     Dosage: UNK
  2. FISH OIL [Concomitant]
     Active Substance: FISH OIL
     Indication: BLOOD CHOLESTEROL ABNORMAL
     Dosage: UNK
  3. PENICILLINE [BENZYLPENICILLIN] [Concomitant]
     Indication: PAIN
     Dosage: UNK
  4. RITALIN [Concomitant]
     Active Substance: METHYLPHENIDATE HYDROCHLORIDE
     Dosage: UNK
  5. FOLIC ACID. [Concomitant]
     Active Substance: FOLIC ACID
     Dosage: UNK
  6. PRAMIPEXOLE. [Concomitant]
     Active Substance: PRAMIPEXOLE
     Dosage: UNK
  7. ENBREL [Suspect]
     Active Substance: ETANERCEPT
     Dosage: UNK UNK, QWK, USUALLY ON THURSDAYS
     Route: 065
  8. LASIX [Concomitant]
     Active Substance: FUROSEMIDE
     Dosage: UNK
  9. VITAMIN B [Concomitant]
     Active Substance: VITAMIN B
     Dosage: UNK
  10. ENBREL [Suspect]
     Active Substance: ETANERCEPT
     Indication: PSORIATIC ARTHROPATHY
     Dosage: UNK UNK, QWK, USUALLY ON THURSDAYS
     Route: 065
  11. TETRACYCLINE [Concomitant]
     Active Substance: TETRACYCLINE
     Indication: PAIN
     Dosage: UNK
  12. BUPROPION. [Concomitant]
     Active Substance: BUPROPION
     Dosage: UNK

REACTIONS (2)
  - Injection site pain [Unknown]
  - Product storage error [Unknown]

NARRATIVE: CASE EVENT DATE: 20190301
